FAERS Safety Report 16831513 (Version 1)
Quarter: 2019Q3

REPORT INFORMATION
  Report Type: Spontaneous
  Country: CA (occurrence: CA)
  Receive Date: 20190920
  Receipt Date: 20190920
  Transmission Date: 20191005
  Serious: Yes (Other)
  Sender: FDA-Public Use
  Company Number: CA-AUROBINDO-AUR-APL-2019-059936

PATIENT
  Age: 60 Year
  Sex: Male

DRUGS (3)
  1. SILIQ [Suspect]
     Active Substance: BRODALUMAB
     Indication: PSORIASIS
     Dosage: 210 MILLIGRAM
     Route: 058
  2. AMOXICILLIN. [Suspect]
     Active Substance: AMOXICILLIN
     Indication: OROPHARYNGEAL PAIN
     Dosage: 500 MILLIGRAM, 3 TIMES A DAY
     Route: 065
  3. SILIQ [Suspect]
     Active Substance: BRODALUMAB
     Indication: PSORIASIS
     Dosage: 210 MILLIGRAM, ONCE IN EVERY 2 WEEKS
     Route: 058

REACTIONS (5)
  - Drug hypersensitivity [Recovering/Resolving]
  - Cellulitis [Recovering/Resolving]
  - Adverse drug reaction [Recovering/Resolving]
  - Rash generalised [Recovering/Resolving]
  - Oropharyngeal pain [Recovering/Resolving]
